FAERS Safety Report 5858048-6 (Version None)
Quarter: 2008Q3

REPORT INFORMATION
  Report Type: 
  Country: None (occurrence: None)
  Receive Date: 20080826
  Receipt Date: 20080819
  Transmission Date: 20090109
  Serious: Yes (Hospitalization)
  Sender: FDA-Public Use
  Company Number: US-MERCK-0807USA01809

PATIENT
  Age: 13 Year
  Sex: Female
  Weight: 49 kg

DRUGS (2)
  1. SINGULAIR [Suspect]
     Indication: ASTHMA
     Route: 048
     Dates: start: 20071219, end: 20080328
  2. ALBUTEROL [Concomitant]
     Indication: ASTHMA

REACTIONS (4)
  - DEPRESSION [None]
  - OVERDOSE [None]
  - SOCIAL AVOIDANT BEHAVIOUR [None]
  - SUICIDE ATTEMPT [None]
